FAERS Safety Report 9591772 (Version 1)
Quarter: 2013Q4

REPORT INFORMATION
  Report Type: Spontaneous
  Country: US (occurrence: US)
  Receive Date: 20131004
  Receipt Date: 20131004
  Transmission Date: 20140711
  Serious: No
  Sender: FDA-Public Use
  Company Number: US-AMGEN-USASP2012083084

PATIENT
  Sex: Female

DRUGS (14)
  1. ENBREL [Suspect]
     Indication: PSORIATIC ARTHROPATHY
     Dosage: 50 MG, QWK
     Route: 058
  2. MAXALT                             /01406501/ [Concomitant]
     Dosage: 5 MG, UNK
  3. PRISTIQ [Concomitant]
     Dosage: 100 MG, UNK
  4. SOMA [Concomitant]
     Dosage: 250 MG, UNK
  5. TOPAMAX [Concomitant]
     Dosage: 100 MG, UNK
  6. METHOTREXATE [Concomitant]
     Dosage: 2.5 MG, UNK
  7. SYNTHROID [Concomitant]
     Dosage: 100 MUG, UNK
  8. TRAZODONE [Concomitant]
     Dosage: 50 MG, UNK
  9. DIAZEPAM [Concomitant]
     Dosage: 10 MG, UNK
  10. VITAMIN B-12 [Concomitant]
     Dosage: 1000 MUG, UNK
  11. OXYCODONE [Concomitant]
     Dosage: 5 MG, UNK
  12. FOLIC ACID [Concomitant]
     Dosage: UNK
  13. NUCYNTA [Concomitant]
     Dosage: 50 MG, UNK
  14. NECON                              /00013701/ [Concomitant]
     Dosage: 0.5/35

REACTIONS (1)
  - Influenza [Unknown]
